FAERS Safety Report 16028832 (Version 1)
Quarter: 2019Q2

REPORT INFORMATION
  Report Type: Spontaneous
  Country: US (occurrence: US)
  Receive Date: 20190301
  Receipt Date: 20190301
  Transmission Date: 20190711
  Serious: Yes (Hospitalization)
  Sender: FDA-Public Use
  Company Number: None

PATIENT
  Sex: Female

DRUGS (9)
  1. LEVEMIR [Concomitant]
     Active Substance: INSULIN DETEMIR
  2. CEROVITE [Concomitant]
     Active Substance: FOLIC ACID\IRON
  3. LANTUS SOLOS [Concomitant]
  4. CANASA [Concomitant]
     Active Substance: MESALAMINE
  5. PANTOPRAZOLE [Concomitant]
     Active Substance: PANTOPRAZOLE
  6. HUMIRA [Suspect]
     Active Substance: ADALIMUMAB
     Indication: PROCTITIS ULCERATIVE
     Dosage: ?          OTHER FREQUENCY:UNKNOWN;?
     Route: 058
  7. DICYCLOMINE [Concomitant]
     Active Substance: DICYCLOMINE HYDROCHLORIDE
  8. PREDNISONE. [Concomitant]
     Active Substance: PREDNISONE
  9. FERROUS SULF [Concomitant]
     Active Substance: FERROUS SULFATE

REACTIONS (1)
  - Adverse event [None]
